FAERS Safety Report 6837002-1 (Version None)
Quarter: 2010Q3

REPORT INFORMATION
  Report Type: 
  Country: None (occurrence: None)
  Receive Date: 20100713
  Receipt Date: 20070428
  Transmission Date: 20110219
  Serious: No
  Sender: FDA-Public Use
  Company Number: US-PFIZER INC-2007035283

PATIENT
  Sex: Female
  Weight: 59.09 kg

DRUGS (4)
  1. CHANTIX [Suspect]
     Indication: SMOKING CESSATION THERAPY
     Dates: start: 20070401
  2. LEXAPRO [Concomitant]
  3. DURAGESIC-100 [Concomitant]
     Dosage: 1 EVERY 3 DAYS
  4. ROXICODONE [Concomitant]

REACTIONS (4)
  - ABNORMAL DREAMS [None]
  - CONSTIPATION [None]
  - HEADACHE [None]
  - NAUSEA [None]
